FAERS Safety Report 22187306 (Version 2)
Quarter: 2023Q2

REPORT INFORMATION
  Report Type: Spontaneous
  Country: US (occurrence: US)
  Receive Date: 20230407
  Receipt Date: 20230424
  Transmission Date: 20230722
  Serious: No
  Sender: FDA-Public Use
  Company Number: US-002147023-NVSC2023US081193

PATIENT
  Age: 70 Year
  Sex: Male

DRUGS (1)
  1. LEQVIO [Suspect]
     Active Substance: INCLISIRAN SODIUM
     Indication: Hyperlipidaemia
     Dosage: 284 MG (INITIAL, 90 DAYS AND EVERY 6 MONTHS THEREAFTER)
     Route: 058
     Dates: start: 20220801, end: 20221101

REACTIONS (1)
  - Influenza like illness [Recovering/Resolving]

NARRATIVE: CASE EVENT DATE: 20221101
